FAERS Safety Report 8954475 (Version 1)
Quarter: 2012Q4

REPORT INFORMATION
  Report Type: 
  Country: FR (occurrence: FR)
  Receive Date: 20121210
  Receipt Date: 20121210
  Transmission Date: 20130627
  Serious: Yes (Other)
  Sender: FDA-Public Use
  Company Number: PHHY2012FR112923

PATIENT
  Age: 59 Year
  Sex: Female

DRUGS (1)
  1. ACLASTA [Suspect]
     Indication: OSTEOPOROSIS
     Dosage: UNK UKN, UNK
     Dates: start: 20121128

REACTIONS (5)
  - Hallucinations, mixed [Recovered/Resolved]
  - Salivary hypersecretion [Recovered/Resolved]
  - Chest pain [Recovering/Resolving]
  - Blood pressure systolic decreased [Recovered/Resolved]
  - Musculoskeletal chest pain [Recovering/Resolving]
